FAERS Safety Report 17169318 (Version 1)
Quarter: 2019Q4

REPORT INFORMATION
  Report Type: Spontaneous
  Country: US (occurrence: US)
  Receive Date: 20191218
  Receipt Date: 20191218
  Transmission Date: 20200122
  Serious: No
  Sender: FDA-Public Use
  Company Number: US-BAYER-2019-221814

PATIENT
  Age: 33 Year
  Sex: Female

DRUGS (4)
  1. MIRALAX [Suspect]
     Active Substance: POLYETHYLENE GLYCOL 3350
     Indication: POSTOPERATIVE CARE
     Dosage: 1 DF, QD
     Route: 048
     Dates: start: 20191125, end: 20191204
  2. MIRALAX [Suspect]
     Active Substance: POLYETHYLENE GLYCOL 3350
     Indication: POSTOPERATIVE CARE
     Dosage: 0.75 DF, QD
     Route: 048
     Dates: start: 20191205
  3. COLACE [Concomitant]
     Active Substance: DOCUSATE SODIUM
     Dosage: UNK
  4. MIRALAX [Suspect]
     Active Substance: POLYETHYLENE GLYCOL 3350
     Indication: POSTOPERATIVE CARE
     Dosage: UNK
     Dates: start: 201905

REACTIONS (3)
  - Product use in unapproved indication [Unknown]
  - Off label use [Unknown]
  - Retching [None]

NARRATIVE: CASE EVENT DATE: 2019
